FAERS Safety Report 18515737 (Version 2)
Quarter: 2020Q4

REPORT INFORMATION
  Report Type: Spontaneous
  Country: US (occurrence: US)
  Receive Date: 20201118
  Receipt Date: 20201129
  Transmission Date: 20210114
  Serious: Yes (Hospitalization)
  Sender: FDA-Public Use
  Company Number: US-ROCHE-2714956

PATIENT
  Sex: Male

DRUGS (1)
  1. COTELLIC [Suspect]
     Active Substance: COBIMETINIB
     Indication: MALIGNANT MELANOMA
     Route: 065
     Dates: start: 20201017

REACTIONS (3)
  - Sepsis [Unknown]
  - Cardiac infection [Unknown]
  - Pneumonia [Recovering/Resolving]
